FAERS Safety Report 12889068 (Version 1)
Quarter: 2016Q4

REPORT INFORMATION
  Report Type: Spontaneous
  Country: JP (occurrence: JP)
  Receive Date: 20161027
  Receipt Date: 20161027
  Transmission Date: 20170207
  Serious: Yes (Other)
  Sender: FDA-Public Use
  Company Number: JP-PFIZER INC-2016495342

PATIENT
  Age: 80 Year
  Sex: Male

DRUGS (1)
  1. LYRICA [Suspect]
     Active Substance: PREGABALIN
     Route: 048

REACTIONS (3)
  - Oesophageal haemorrhage [Unknown]
  - Foreign body [Unknown]
  - Accidental exposure to product [Unknown]
